FAERS Safety Report 21184401 (Version 1)
Quarter: 2022Q3

REPORT INFORMATION
  Report Type: Spontaneous
  Country: US (occurrence: US)
  Receive Date: 20220808
  Receipt Date: 20220808
  Transmission Date: 20221027
  Serious: No
  Sender: FDA-Public Use
  Company Number: US-BRISTOL-MYERS SQUIBB COMPANY-2022-076872

PATIENT
  Age: 63 Year
  Sex: Female

DRUGS (2)
  1. OPDIVO [Suspect]
     Active Substance: NIVOLUMAB
     Indication: Product used for unknown indication
     Route: 065
  2. INLYTA [Suspect]
     Active Substance: AXITINIB
     Indication: Product used for unknown indication
     Dosage: TAKE 2 (5MG) TABLETS BY MOUTH DAILY
     Route: 048
     Dates: start: 20220519

REACTIONS (8)
  - Sneezing [Unknown]
  - Headache [Not Recovered/Not Resolved]
  - Motion sickness [Unknown]
  - Pain [Unknown]
  - Illness [Unknown]
  - Nausea [Unknown]
  - Scratch [Unknown]
  - Tenderness [Not Recovered/Not Resolved]
